FAERS Safety Report 4837477-3 (Version None)
Quarter: 2005Q4

REPORT INFORMATION
  Report Type: 
  Country: None (occurrence: None)
  Receive Date: 20051123
  Receipt Date: 20051123
  Transmission Date: 20060501
  Serious: No
  Sender: FDA-Public Use
  Company Number: None

PATIENT
  Age: 84 Year
  Sex: Male
  Weight: 57.2 kg

DRUGS (10)
  1. OXYCODONE (UD) - (SUSTAINED RELEASE) [Suspect]
     Dosage: 10MGPO
     Route: 048
     Dates: start: 20050409, end: 20050410
  2. ARTIFICIAL TEARS POLYVINYL ALCOHOL [Concomitant]
  3. LUBRICATING (PF) OPH OINT [Concomitant]
  4. HCTZ 50/TRIAMTERENE [Concomitant]
  5. QUETIAPINE FUMARATE [Concomitant]
  6. SERTRALINE HCL [Concomitant]
  7. IBUPROFEN [Concomitant]
  8. OMEPRAZOLE [Concomitant]
  9. LEVOCABASTINE HCL [Concomitant]
  10. HYDROCORTISONE [Concomitant]

REACTIONS (1)
  - HALLUCINATION [None]
